FAERS Safety Report 15791816 (Version 2)
Quarter: 2019Q1

REPORT INFORMATION
  Report Type: Spontaneous
  Country: US (occurrence: US)
  Receive Date: 20190105
  Receipt Date: 20190128
  Transmission Date: 20190417
  Serious: No
  Sender: FDA-Public Use
  Company Number: US-DSJP-DSU-2017-146953

PATIENT

DRUGS (4)
  1. BENICAR HCT [Suspect]
     Active Substance: HYDROCHLOROTHIAZIDE\OLMESARTAN MEDOXOMIL
     Dosage: 40-25MG, QD
     Route: 048
     Dates: start: 20100208, end: 20161101
  2. AZOR [Suspect]
     Active Substance: AMLODIPINE BESYLATE\OLMESARTAN MEDOXOMIL
     Indication: PRODUCT USED FOR UNKNOWN INDICATION
     Dosage: 5-20MG, UNK
     Dates: start: 20100208, end: 20161101
  3. BENICAR HCT [Suspect]
     Active Substance: HYDROCHLOROTHIAZIDE\OLMESARTAN MEDOXOMIL
     Indication: PRODUCT USED FOR UNKNOWN INDICATION
     Dosage: 40-12.5 MG, UNK
     Dates: start: 20100208, end: 20161101
  4. AZOR [Suspect]
     Active Substance: AMLODIPINE BESYLATE\OLMESARTAN MEDOXOMIL
     Dosage: 10-40MG, QD
     Route: 048
     Dates: start: 20100208, end: 20161101

REACTIONS (4)
  - Sprue-like enteropathy [Recovering/Resolving]
  - Irritable bowel syndrome [Recovered/Resolved]
  - Haemorrhoids [Not Recovered/Not Resolved]
  - Reactive gastropathy [Unknown]

NARRATIVE: CASE EVENT DATE: 20100208
